FAERS Safety Report 18022901 (Version 1)
Quarter: 2020Q3

REPORT INFORMATION
  Report Type: Spontaneous
  Country: US (occurrence: US)
  Receive Date: 20200715
  Receipt Date: 20200715
  Transmission Date: 20201103
  Serious: No
  Sender: FDA-Public Use
  Company Number: US-ALLERGAN-2017793US

PATIENT
  Age: 53 Year
  Sex: Female

DRUGS (10)
  1. ALPRAZOLAM. [Concomitant]
     Active Substance: ALPRAZOLAM
  2. HUMIRA [Concomitant]
     Active Substance: ADALIMUMAB
  3. FLUTICASONE PROPIONATE. [Concomitant]
     Active Substance: FLUTICASONE PROPIONATE
     Route: 045
  4. UBRELVY [Suspect]
     Active Substance: UBROGEPANT
     Indication: MIGRAINE
     Dosage: 50 MG, SINGLE
     Dates: start: 20200422, end: 20200426
  5. TRAMADOL. [Concomitant]
     Active Substance: TRAMADOL
  6. LORATADINE. [Concomitant]
     Active Substance: LORATADINE
  7. SOMA [Concomitant]
     Active Substance: CARISOPRODOL
  8. LYRICA [Concomitant]
     Active Substance: PREGABALIN
  9. PROAIR HFA [Concomitant]
     Active Substance: ALBUTEROL SULFATE
  10. PAROXETINE. [Concomitant]
     Active Substance: PAROXETINE

REACTIONS (2)
  - Urticaria [Recovered/Resolved]
  - Pruritus [Recovered/Resolved]
